FAERS Safety Report 7817129-8 (Version None)
Quarter: 2011Q4

REPORT INFORMATION
  Report Type: 
  Country: None (occurrence: None)
  Receive Date: 20111017
  Receipt Date: 20111017
  Transmission Date: 20120403
  Serious: Yes (Other)
  Sender: FDA-Public Use
  Company Number: None

PATIENT
  Age: 53 Year
  Sex: Female
  Weight: 70.306 kg

DRUGS (1)
  1. EVAMIST [Suspect]
     Indication: MENOPAUSAL SYMPTOMS
     Dosage: 2 X 1.53 MG
     Route: 062
     Dates: start: 20081101, end: 20111006

REACTIONS (2)
  - ACCIDENTAL EXPOSURE [None]
  - ALOPECIA [None]
